FAERS Safety Report 17132865 (Version 2)
Quarter: 2025Q3

REPORT INFORMATION
  Report Type: Spontaneous
  Country: EU (occurrence: EU)
  Receive Date: 20191210
  Receipt Date: 20250710
  Transmission Date: 20251021
  Serious: Yes (Hospitalization, Other)
  Sender: AUROBINDO
  Company Number: EU-EISAI EUROPE LTD-EC-2019-065783

PATIENT
  Age: 54 Year
  Sex: Female

DRUGS (11)
  1. OLANZAPINE [Suspect]
     Active Substance: OLANZAPINE
     Indication: Hallucination
     Dosage: 40 MILLIGRAM, ONCE A DAY
     Route: 065
     Dates: start: 201901, end: 2019
  2. OLANZAPINE [Suspect]
     Active Substance: OLANZAPINE
     Indication: Delusion
  3. OLANZAPINE [Suspect]
     Active Substance: OLANZAPINE
     Indication: Mania
  4. CLONAZEPAM [Suspect]
     Active Substance: CLONAZEPAM
     Indication: Hallucination
     Dosage: 3.5 MILLIGRAM, ONCE A DAY
     Route: 065
     Dates: start: 201901, end: 2019
  5. CLONAZEPAM [Suspect]
     Active Substance: CLONAZEPAM
     Indication: Mania
  6. CLONAZEPAM [Suspect]
     Active Substance: CLONAZEPAM
     Indication: Delusion
  7. LOXAPINE [Suspect]
     Active Substance: LOXAPINE
     Indication: Mania
     Dosage: 50 MILLIGRAM, ONCE A DAY
     Route: 065
     Dates: start: 201901, end: 2019
  8. LOXAPINE [Suspect]
     Active Substance: LOXAPINE
     Indication: Delusion
  9. LOXAPINE [Suspect]
     Active Substance: LOXAPINE
     Indication: Hallucination
  10. PREDNISOLONE [Concomitant]
     Active Substance: PREDNISOLONE
     Indication: Systemic lupus erythematosus
     Dosage: 5 MILLIGRAM, ONCE A DAY
     Route: 065
     Dates: start: 2015, end: 2019
  11. MYCOPHENOLATE MOFETIL [Concomitant]
     Active Substance: MYCOPHENOLATE MOFETIL
     Indication: Systemic lupus erythematosus
     Dosage: 2 GRAM, ONCE A DAY
     Route: 065
     Dates: start: 2015, end: 2019

REACTIONS (3)
  - Acute respiratory distress syndrome [Unknown]
  - Psychotic disorder due to a general medical condition [Recovering/Resolving]
  - Catatonia [Recovering/Resolving]

NARRATIVE: CASE EVENT DATE: 20190101
